FAERS Safety Report 5514586-7 (Version None)
Quarter: 2007Q4

REPORT INFORMATION
  Report Type: 
  Country: None (occurrence: None)
  Receive Date: 20071113
  Receipt Date: 20071102
  Transmission Date: 20080405
  Serious: Yes (Hospitalization)
  Sender: FDA-Public Use
  Company Number: B0494925A

PATIENT
  Age: 93 Year
  Sex: Female

DRUGS (6)
  1. AUGMENTIN '500' [Suspect]
     Indication: BRONCHOPNEUMOPATHY
     Dosage: 3G PER DAY
     Route: 048
     Dates: start: 20070630, end: 20070707
  2. CETORNAN [Suspect]
     Dosage: 2SAC PER DAY
     Route: 048
     Dates: start: 20070531, end: 20070705
  3. DEROXAT [Concomitant]
     Indication: DEPRESSION
     Dosage: 20MG PER DAY
     Route: 048
     Dates: start: 20070603
  4. LANTUS [Concomitant]
     Route: 058
  5. ACUPAN [Concomitant]
     Indication: PAIN
     Dosage: 5AMP PER DAY
     Route: 048
     Dates: start: 20070603
  6. NORMACOL [Concomitant]

REACTIONS (5)
  - BLOOD OSMOLARITY DECREASED [None]
  - DEHYDRATION [None]
  - DIARRHOEA [None]
  - HYPOGLYCAEMIA [None]
  - PYREXIA [None]
